FAERS Safety Report 5329347-1 (Version None)
Quarter: 2007Q2

REPORT INFORMATION
  Report Type: 
  Country: None (occurrence: None)
  Receive Date: 20070518
  Receipt Date: 20070509
  Transmission Date: 20071010
  Serious: Yes (Other)
  Sender: FDA-Public Use
  Company Number: NL-PFIZER INC-2007038678

PATIENT
  Age: 72 Year
  Sex: Female

DRUGS (3)
  1. LIPITOR [Suspect]
     Indication: DYSLIPIDAEMIA
     Route: 048
     Dates: start: 20070301, end: 20070506
  2. VITAMINS [Concomitant]
     Route: 048
  3. CLOMIPRAMINE HCL [Concomitant]
     Route: 048

REACTIONS (4)
  - CACHEXIA [None]
  - DIZZINESS [None]
  - FATIGUE [None]
  - RASH [None]
